FAERS Safety Report 8383256-2 (Version None)
Quarter: 2012Q2

REPORT INFORMATION
  Report Type: 
  Country: None (occurrence: None)
  Receive Date: 20120524
  Receipt Date: 20120521
  Transmission Date: 20120825
  Serious: Yes (Hospitalization)
  Sender: FDA-Public Use
  Company Number: JP-BAYER-2012-040518

PATIENT
  Age: 79 Year
  Sex: Male
  Weight: 63 kg

DRUGS (9)
  1. WARFARIN SODIUM [Concomitant]
     Indication: ATRIAL FIBRILLATION
     Dosage: DAILY DOSE 4.25 MG
     Route: 048
     Dates: end: 20120503
  2. DIOVAN [Concomitant]
     Indication: HYPERTENSION
     Dosage: DAILY DOSE 80 MG
     Route: 048
  3. AMOBAN [Concomitant]
     Indication: INSOMNIA
     Dosage: DAILY DOSE 10 MG
     Route: 048
  4. BISOPROLOL FUMARATE [Concomitant]
     Indication: HYPERTENSION
     Dosage: DAILY DOSE 2.5 MG
     Route: 048
  5. NORVASC [Concomitant]
     Indication: HYPERTENSION
     Dosage: DAILY DOSE 5 MG
     Route: 048
  6. NEXIUM [Concomitant]
     Indication: GASTROOESOPHAGEAL REFLUX DISEASE
     Dosage: DAILY DOSE 20 MG
     Route: 048
  7. NEXAVAR [Suspect]
     Indication: HEPATIC NEOPLASM MALIGNANT
     Dosage: DAILY DOSE 400 MG
     Route: 048
     Dates: start: 20120308, end: 20120418
  8. LIVACT [Concomitant]
     Indication: HYPOALBUMINAEMIA
     Dosage: DAILY DOSE 12.45 G
     Route: 048
  9. MIRIPLA [Concomitant]
     Indication: REGIONAL CHEMOTHERAPY
     Dosage: UNK
     Route: 013
     Dates: start: 20120201

REACTIONS (1)
  - LIVER DISORDER [None]
